FAERS Safety Report 4811250-4 (Version None)
Quarter: 2005Q4

REPORT INFORMATION
  Report Type: 
  Country: None (occurrence: None)
  Receive Date: 20051027
  Receipt Date: 20050719
  Transmission Date: 20060501
  Serious: Yes (Hospitalization)
  Sender: FDA-Public Use
  Company Number: US-MERCK-0507USA02760

PATIENT
  Age: 59 Year
  Sex: Female
  Weight: 72 kg

DRUGS (18)
  1. ACETAMINOPHEN AND OXYCODONE HYDROCHLORIDE [Concomitant]
     Indication: PAIN
     Route: 065
  2. PATANOL [Concomitant]
     Indication: EYE IRRITATION
     Route: 065
  3. PROMETHAZINE [Concomitant]
     Indication: HYPERSENSITIVITY
     Route: 065
  4. SKELAXIN [Concomitant]
     Indication: HYPERTENSION
     Route: 065
  5. TRAMADOL HYDROCHLORIDE [Concomitant]
     Indication: PAIN
     Route: 065
  6. TRIMETHOBENZAMIDE HYDROCHLORIDE [Concomitant]
     Indication: INFECTION
     Route: 065
  7. ULTRAM [Concomitant]
     Indication: PAIN
     Route: 065
  8. ZITHROMAX [Concomitant]
     Route: 065
  9. ZYBAN [Concomitant]
     Indication: EX-SMOKER
     Route: 065
  10. VIOXX [Suspect]
     Indication: ARTHRALGIA
     Route: 048
     Dates: start: 20020129, end: 20021217
  11. VIOXX [Suspect]
     Indication: PAIN IN EXTREMITY
     Route: 048
     Dates: start: 20020129, end: 20021217
  12. CALCIUM (UNSPECIFIED) [Concomitant]
     Route: 065
  13. BENZONATATE [Concomitant]
     Indication: COUGH
     Route: 065
  14. EVISTA [Concomitant]
     Indication: HORMONE REPLACEMENT THERAPY
     Route: 065
  15. HYDROCHLOROTHIAZIDE [Concomitant]
     Route: 065
  16. HYDROCODONE BITARTRATE + ACETAMINOPHEN [Concomitant]
     Indication: PAIN
     Route: 065
  17. LIPITOR [Concomitant]
     Indication: BLOOD CHOLESTEROL INCREASED
     Route: 065
     Dates: start: 20010427
  18. METHOCARBAMOL [Concomitant]
     Indication: PAIN
     Route: 065

REACTIONS (2)
  - PERIPHERAL EMBOLISM [None]
  - PULMONARY EMBOLISM [None]
